FAERS Safety Report 16421054 (Version 1)
Quarter: 2019Q3

REPORT INFORMATION
  Report Type: Spontaneous
  Country: US (occurrence: US)
  Receive Date: 20190611
  Receipt Date: 20190611
  Transmission Date: 20191004
  Serious: No
  Sender: FDA-Public Use
  Company Number: None

PATIENT
  Age: 71 Year
  Sex: Female
  Weight: 45 kg

DRUGS (11)
  1. AFINITOR [Suspect]
     Active Substance: EVEROLIMUS
     Indication: BREAST CANCER
     Route: 048
     Dates: start: 20181006, end: 20190611
  2. EXEMESTABE [Suspect]
     Active Substance: EXEMESTANE
     Indication: BREAST CANCER
     Route: 048
     Dates: start: 20180517, end: 20190611
  3. LEVOTHYROXINE. [Concomitant]
     Active Substance: LEVOTHYROXINE
  4. TYLENOL [Concomitant]
     Active Substance: ACETAMINOPHEN
  5. LIDOCAINE. [Concomitant]
     Active Substance: LIDOCAINE
  6. NYSTATIN. [Concomitant]
     Active Substance: NYSTATIN
  7. PRILOSEC [Concomitant]
     Active Substance: OMEPRAZOLE MAGNESIUM
  8. CALCIUM [Concomitant]
     Active Substance: CALCIUM
  9. SUMATRIPTAN. [Concomitant]
     Active Substance: SUMATRIPTAN
  10. PROPANOLOL [Concomitant]
     Active Substance: PROPRANOLOL HYDROCHLORIDE
  11. VITAMIN B12 [Concomitant]
     Active Substance: CYANOCOBALAMIN

REACTIONS (1)
  - Disease progression [None]
